FAERS Safety Report 7158646-6 (Version None)
Quarter: 2010Q4

REPORT INFORMATION
  Report Type: 
  Country: None (occurrence: None)
  Receive Date: 20101214
  Receipt Date: 20100617
  Transmission Date: 20110411
  Serious: No
  Sender: FDA-Public Use
  Company Number: US-ASTRAZENECA-2010SE28755

PATIENT
  Age: 72 Year
  Sex: Female

DRUGS (10)
  1. CRESTOR [Suspect]
     Indication: HYPERCHOLESTEROLAEMIA
     Route: 048
     Dates: start: 20090301, end: 20090901
  2. TRICOR [Suspect]
     Indication: HYPERCHOLESTEROLAEMIA
     Route: 065
     Dates: start: 20090301, end: 20090901
  3. CLOPIDOGREL [Concomitant]
     Indication: CORONARY ARTERY BYPASS
  4. ACETYLSALICYLIC ACID [Concomitant]
     Indication: CORONARY ARTERY BYPASS
  5. LEVOTHYROXINE [Concomitant]
     Indication: HYPOTHYROIDISM
  6. PARICALCITOL [Concomitant]
     Indication: VITAMIN D DEFICIENCY
  7. ERGOCALCIFEROL [Concomitant]
     Indication: VITAMIN D DEFICIENCY
  8. INSULIN [Concomitant]
     Indication: TYPE 1 DIABETES MELLITUS
  9. INSULIN GLARGINE [Concomitant]
     Indication: TYPE 1 DIABETES MELLITUS
  10. IRON [Concomitant]
     Indication: IRON DEFICIENCY

REACTIONS (2)
  - BLOOD CHOLESTEROL ABNORMAL [None]
  - CARBON DIOXIDE DECREASED [None]
